FAERS Safety Report 6379218 (Version 2)
Quarter: 2020Q3

REPORT INFORMATION
  Report Type: Spontaneous
  Country: IT (occurrence: IT)
  Receive Date: 20070809
  Receipt Date: 20080206
  Transmission Date: 20201104
  Serious: Yes (Hospitalization)
  Sender: FDA-Public Use
  Company Number: IT-ROCHE-509300

PATIENT
  Age: 73 Year
  Sex: Male

DRUGS (2)
  1. IBANDRONIC ACID. [Suspect]
     Active Substance: IBANDRONIC ACID
     Indication: BREAST CANCER STAGE IV
     Route: 042
     Dates: start: 20050110, end: 20070709
  2. AROMASIN [Concomitant]
     Active Substance: EXEMESTANE
     Route: 048

REACTIONS (1)
  - Osteonecrosis [Recovering/Resolving]

NARRATIVE: CASE EVENT DATE: 20070709
